FAERS Safety Report 4870082-1 (Version None)
Quarter: 2005Q4

REPORT INFORMATION
  Report Type: 
  Country: None (occurrence: None)
  Receive Date: 20051229
  Receipt Date: 20051229
  Transmission Date: 20060501
  Serious: Yes (Hospitalization, Other)
  Sender: FDA-Public Use
  Company Number: None

PATIENT
  Sex: Female
  Weight: 74 kg

DRUGS (4)
  1. FLUOROURACIL [Suspect]
     Indication: GASTRIC CANCER
     Dosage: SEE IMAGE
     Dates: start: 20051104
  2. CISPLATIN [Suspect]
     Dosage: SEE IMAGE
     Dates: start: 20051104
  3. EPIRUBICIN [Suspect]
     Dosage: SEE IMAGE
     Dates: start: 20051104
  4. RADIATION [Suspect]
     Dosage: SEE IMAGE
     Dates: start: 20051104

REACTIONS (1)
  - UPPER GASTROINTESTINAL HAEMORRHAGE [None]
